FAERS Safety Report 19956204 (Version 4)
Quarter: 2021Q4

REPORT INFORMATION
  Report Type: Spontaneous
  Country: FR (occurrence: FR)
  Receive Date: 20211014
  Receipt Date: 20211215
  Transmission Date: 20220303
  Serious: Yes (Other)
  Sender: FDA-Public Use
  Company Number: FR-BAYER-2021A228184

PATIENT
  Age: 23 Year
  Sex: Female

DRUGS (1)
  1. KYLEENA [Suspect]
     Active Substance: LEVONORGESTREL
     Dosage: 17.5?G/DAY
     Route: 015
     Dates: start: 20200711

REACTIONS (6)
  - Device breakage [None]
  - Embedded device [None]
  - Complication of device removal [None]
  - Heavy menstrual bleeding [None]
  - Dysmenorrhoea [None]
  - Polymenorrhoea [None]

NARRATIVE: CASE EVENT DATE: 20211007
